FAERS Safety Report 12205037 (Version 2)
Quarter: 2017Q1

REPORT INFORMATION
  Report Type: Spontaneous
  Country: US (occurrence: US)
  Receive Date: 20160323
  Receipt Date: 20170217
  Transmission Date: 20170428
  Serious: Yes (Life-Threatening, Hospitalization)
  Sender: FDA-Public Use
  Company Number: US-BAYER-2016-050524

PATIENT
  Age: 16 Year
  Sex: Female

DRUGS (1)
  1. ACETYLSALICYLIC ACID({=100 MG) [Suspect]
     Active Substance: ASPIRIN
     Indication: FEELING OF RELAXATION
     Dosage: UNK

REACTIONS (9)
  - Pancreatitis [None]
  - Pulmonary oedema [None]
  - Toxicity to various agents [None]
  - Coagulopathy [None]
  - Product use issue [None]
  - Acid base balance abnormal [None]
  - Blood electrolytes abnormal [None]
  - Intentional overdose [None]
  - Azotaemia [None]
